FAERS Safety Report 19173161 (Version 2)
Quarter: 2021Q3

REPORT INFORMATION
  Report Type: Spontaneous
  Country: JP (occurrence: JP)
  Receive Date: 20210423
  Receipt Date: 20210709
  Transmission Date: 20211014
  Serious: Yes (Other)
  Sender: FDA-Public Use
  Company Number: JP-GLAXOSMITHKLINE-JP2021090129

PATIENT
  Age: 58 Year
  Sex: Female

DRUGS (1)
  1. ZEJULA [Suspect]
     Active Substance: NIRAPARIB
     Indication: OVARIAN CANCER RECURRENT
     Dosage: 100 MILLIGRAM
     Route: 048
     Dates: start: 20210120, end: 20210317

REACTIONS (2)
  - Disease progression [Recovering/Resolving]
  - Ovarian cancer [Recovering/Resolving]

NARRATIVE: CASE EVENT DATE: 20210317
